FAERS Safety Report 8766696 (Version 2)
Quarter: 2012Q4

REPORT INFORMATION
  Report Type: 
  Country: US (occurrence: US)
  Receive Date: 20120904
  Receipt Date: 20121228
  Transmission Date: 20130627
  Serious: Yes (Death)
  Sender: FDA-Public Use
  Company Number: US-BAYER-2012-089005

PATIENT
  Age: 23 Year
  Sex: Female
  Weight: 83.9 kg

DRUGS (3)
  1. YAZ [Suspect]
     Dosage: UNK
     Dates: start: 200903, end: 201007
  2. GIANVI [Suspect]
     Dosage: UNK
     Dates: start: 201007, end: 201008
  3. NAPROXEN [Concomitant]
     Dosage: 500 mg, UNK
     Route: 048
     Dates: start: 20100612

REACTIONS (2)
  - Pulmonary embolism [Fatal]
  - Deep vein thrombosis [Fatal]
